FAERS Safety Report 10600181 (Version 2)
Quarter: 2014Q4

REPORT INFORMATION
  Report Type: Report from Study
  Country: US (occurrence: US)
  Receive Date: 20141122
  Receipt Date: 20141201
  Transmission Date: 20150529
  Serious: Yes (Hospitalization, Other)
  Sender: FDA-Public Use
  Company Number: US-ABBVIE-14K-163-1310264-00

PATIENT
  Age: 68 Year
  Sex: Female
  Weight: 61.29 kg

DRUGS (2)
  1. VITAMINS NOS [Concomitant]
     Active Substance: VITAMINS
     Indication: VITAMIN SUPPLEMENTATION
  2. HUMIRA [Suspect]
     Active Substance: ADALIMUMAB
     Indication: PSORIASIS
     Route: 058

REACTIONS (11)
  - Nasopharyngitis [Not Recovered/Not Resolved]
  - Cholelithiasis [Recovered/Resolved]
  - Dyspnoea exertional [Recovered/Resolved]
  - Pneumothorax traumatic [Not Recovered/Not Resolved]
  - Heart rate decreased [Recovered/Resolved]
  - Pneumothorax spontaneous [Recovered/Resolved]
  - Neuralgia [Not Recovered/Not Resolved]
  - Pancreatitis [Recovered/Resolved]
  - Asthenia [Recovered/Resolved]
  - Incision site hypoaesthesia [Not Recovered/Not Resolved]
  - Inappropriate schedule of drug administration [Recovered/Resolved]

NARRATIVE: CASE EVENT DATE: 201212
